FAERS Safety Report 23387259 (Version 1)
Quarter: 2024Q1

REPORT INFORMATION
  Report Type: Spontaneous
  Country: US (occurrence: US)
  Receive Date: 20240110
  Receipt Date: 20240110
  Transmission Date: 20240410
  Serious: No
  Sender: FDA-Public Use
  Company Number: US-BEH-2024167131

PATIENT
  Sex: Female

DRUGS (1)
  1. HIZENTRA [Suspect]
     Active Substance: HUMAN IMMUNOGLOBULIN G
     Indication: Chronic inflammatory demyelinating polyradiculoneuropathy
     Dosage: 37 GRAM, QW
     Route: 058
     Dates: start: 202308

REACTIONS (3)
  - Abdominal distension [Unknown]
  - Infusion site irritation [Unknown]
  - Infusion site pruritus [Unknown]
